FAERS Safety Report 5474276-6 (Version None)
Quarter: 2007Q4

REPORT INFORMATION
  Report Type: 
  Country: None (occurrence: None)
  Receive Date: 20071002
  Receipt Date: 20070816
  Transmission Date: 20080405
  Serious: No
  Sender: FDA-Public Use
  Company Number: US-ASTRAZENECA-2007UW14703

PATIENT
  Sex: Female
  Weight: 45.1 kg

DRUGS (3)
  1. ARIMIDEX [Suspect]
     Indication: BREAST CANCER STAGE I
     Route: 048
     Dates: start: 20070401, end: 20070601
  2. SYNTHROID [Concomitant]
  3. FOSAMAX [Concomitant]

REACTIONS (5)
  - JOINT STIFFNESS [None]
  - PALLOR [None]
  - SKIN WRINKLING [None]
  - WEIGHT DECREASED [None]
  - WEIGHT GAIN POOR [None]
